FAERS Safety Report 7076197-4 (Version None)
Quarter: 2010Q4

REPORT INFORMATION
  Report Type: 
  Country: None (occurrence: None)
  Receive Date: 20101101
  Receipt Date: 20101022
  Transmission Date: 20110411
  Serious: Yes (Other)
  Sender: FDA-Public Use
  Company Number: US-BAYER-201038753NA

PATIENT
  Age: 24 Year
  Sex: Female

DRUGS (2)
  1. YAZ [Suspect]
     Dates: start: 20061001, end: 20070801
  2. YAZ [Suspect]
     Dates: start: 20090801, end: 20091201

REACTIONS (1)
  - CHOLECYSTECTOMY [None]
